FAERS Safety Report 4284763-4 (Version None)
Quarter: 2004Q1

REPORT INFORMATION
  Report Type: 
  Country: None (occurrence: None)
  Receive Date: 20040202
  Receipt Date: 20040120
  Transmission Date: 20041129
  Serious: Yes (Death, Hospitalization)
  Sender: FDA-Public Use
  Company Number: JP-JNJFOC-20031202795

PATIENT
  Age: 66 Year
  Sex: Male

DRUGS (21)
  1. FENTANYL [Suspect]
     Indication: CANCER PAIN
     Dosage: SEE IMAGE , TRANSDERMAL
     Route: 062
     Dates: start: 20030930, end: 20031002
  2. FENTANYL [Suspect]
     Indication: CANCER PAIN
     Dosage: SEE IMAGE , TRANSDERMAL
     Route: 062
     Dates: start: 20031003, end: 20031006
  3. FENTANYL [Suspect]
     Indication: CANCER PAIN
     Dosage: SEE IMAGE , TRANSDERMAL
     Route: 062
     Dates: start: 20031006, end: 20031009
  4. FENTANYL [Suspect]
     Indication: CANCER PAIN
     Dosage: SEE IMAGE , TRANSDERMAL
     Route: 062
     Dates: start: 20031009, end: 20031016
  5. FENTANYL [Suspect]
     Indication: CANCER PAIN
     Dosage: SEE IMAGE , TRANSDERMAL
     Route: 062
     Dates: start: 20031016, end: 20031023
  6. FENTANYL [Suspect]
     Indication: CANCER PAIN
     Dosage: SEE IMAGE , TRANSDERMAL
     Route: 062
     Dates: start: 20031023, end: 20031104
  7. FENTANYL [Suspect]
     Indication: CANCER PAIN
     Dosage: SEE IMAGE , TRANSDERMAL
     Route: 062
     Dates: start: 20031105, end: 20031113
  8. MORPHINE HYDROCHLORIDE (MORPHINE HYDROCHLORIDE) [Suspect]
     Indication: CANCER PAIN
     Dosage: 30 MG, 1 IN 1 AS NECESSARY, ORAL
     Route: 048
     Dates: start: 20031005, end: 20031104
  9. TRIAZOLAM [Suspect]
     Indication: INSOMNIA
     Dosage: 1 DOSE(S) , 1 IN 1 DAY, ORAL
     Route: 048
     Dates: end: 20031104
  10. MIDAZOLAM (MIDAZOLAM) [Suspect]
     Indication: INSOMNIA
     Dosage: INTRAVENOUS DRIP
     Route: 041
     Dates: end: 20031112
  11. SODIUM PICOSULFATE [Concomitant]
  12. IMIPRAMINE HCL [Concomitant]
  13. NABUMETONE [Concomitant]
  14. URSODESOXYCHOLIC ACID (URSODEOXYCHOLIC ACID) [Concomitant]
  15. AZOSEMIDE [Concomitant]
  16. POTASSIUM CHLORIDE [Concomitant]
  17. PROCHLOPERAZINE MALEATE [Concomitant]
  18. METOCLOPRAMIDE [Concomitant]
  19. REBAMIPIDE [Concomitant]
  20. FELBINAC [Concomitant]
  21. RANITIDINE HYDROCHLORIDE [Concomitant]

REACTIONS (10)
  - ASCITES [None]
  - BILIARY TRACT INFECTION [None]
  - CONSTIPATION [None]
  - DEPRESSED LEVEL OF CONSCIOUSNESS [None]
  - NAUSEA [None]
  - OEDEMA PERIPHERAL [None]
  - PAIN EXACERBATED [None]
  - RESPIRATORY DEPRESSION [None]
  - SOMNOLENCE [None]
  - VOMITING [None]
